FAERS Safety Report 4694191-5 (Version None)
Quarter: 2005Q2

REPORT INFORMATION
  Report Type: 
  Country: None (occurrence: None)
  Receive Date: 20050616
  Receipt Date: 20050616
  Transmission Date: 20051028
  Serious: Yes (Life-Threatening, Hospitalization)
  Sender: FDA-Public Use
  Company Number: None

PATIENT
  Age: 51 Year
  Sex: Female
  Weight: 50.8029 kg

DRUGS (5)
  1. AVASTIN [Suspect]
     Indication: LUNG ADENOCARCINOMA
     Dosage: AVASTIN 15 MG/KG IV
     Route: 042
     Dates: start: 20050608
  2. CARBOPLATIN [Suspect]
     Dosage: CARBOPLATIN IV
     Route: 042
     Dates: start: 20050608
  3. TAXOL [Suspect]
     Dosage: TAXOL IV
     Route: 042
  4. ZOFRAN [Concomitant]
  5. PHENERGAN [Concomitant]

REACTIONS (5)
  - APHASIA [None]
  - CEREBRAL ISCHAEMIA [None]
  - DYSPHAGIA [None]
  - HEMIPARESIS [None]
  - PULMONARY EMBOLISM [None]
